FAERS Safety Report 12648031 (Version 2)
Quarter: 2016Q3

REPORT INFORMATION
  Report Type: Other
  Country: US (occurrence: US)
  Receive Date: 20160812
  Receipt Date: 20160824
  Transmission Date: 20161109
  Serious: Yes (Other)
  Sender: FDA-Public Use
  Company Number: US-ACORDA-ACO_126931_2016

PATIENT
  Age: 49 Year
  Sex: Male
  Weight: 71.66 kg

DRUGS (2)
  1. AMPYRA [Suspect]
     Active Substance: DALFAMPRIDINE
     Indication: GAIT DISTURBANCE
     Dosage: 10 MG, BID
     Route: 048
     Dates: start: 2010
  2. AUBAGIO [Concomitant]
     Active Substance: TERIFLUNOMIDE
     Indication: PRODUCT USED FOR UNKNOWN INDICATION
     Dosage: UNK
     Route: 065
     Dates: start: 201512

REACTIONS (4)
  - Gastrointestinal tube insertion [Unknown]
  - Gait disturbance [Recovering/Resolving]
  - Tonsil cancer [Unknown]
  - Weight decreased [Unknown]

NARRATIVE: CASE EVENT DATE: 201606
